FAERS Safety Report 7476037-5 (Version None)
Quarter: 2011Q2

REPORT INFORMATION
  Report Type: 
  Country: None (occurrence: None)
  Receive Date: 20110512
  Receipt Date: 20110506
  Transmission Date: 20111010
  Serious: Yes (Hospitalization)
  Sender: FDA-Public Use
  Company Number: GB-TEVA-281121ISR

PATIENT
  Sex: Male

DRUGS (2)
  1. LAMOTRIGINE [Suspect]
  2. LEVETIRACETAM [Suspect]

REACTIONS (14)
  - AUTISM [None]
  - APHASIA [None]
  - DEVELOPMENTAL DELAY [None]
  - HYPERPYREXIA [None]
  - MOVEMENT DISORDER [None]
  - NEUROLOGICAL DECOMPENSATION [None]
  - ENCEPHALOPATHY [None]
  - ELECTROENCEPHALOGRAM ABNORMAL [None]
  - ACUTE HEPATIC FAILURE [None]
  - DYSTONIA [None]
  - METABOLIC ACIDOSIS [None]
  - STATUS EPILEPTICUS [None]
  - CONVULSION [None]
  - RHABDOMYOLYSIS [None]
